FAERS Safety Report 9012199 (Version 1)
Quarter: 2013Q1

REPORT INFORMATION
  Report Type: Spontaneous
  Country: US (occurrence: US)
  Receive Date: 20130114
  Receipt Date: 20130114
  Transmission Date: 20140127
  Serious: Yes (Other)
  Sender: FDA-Public Use
  Company Number: US-BAYER-2013-002614

PATIENT
  Age: 44 Year
  Sex: Female
  Weight: 60 kg

DRUGS (10)
  1. ONE A DAY WOMEN^S 50 [Suspect]
     Route: 048
  2. ONE A DAY WOMEN^S 50 [Suspect]
     Dosage: 2 DF, UNK
     Route: 048
     Dates: start: 20130104, end: 20130104
  3. BAYER GENUINE ASPIRIN ORIGINAL STRENGTH [Suspect]
     Indication: PRODUCT USED FOR UNKNOWN INDICATION
  4. ADVAIR [Concomitant]
     Route: 045
  5. VENTOLIN INHALER [Concomitant]
     Route: 045
  6. OXYCONTIN [Concomitant]
  7. NUVIGIL [Concomitant]
  8. NEURONTIN [Concomitant]
  9. MUCINEX D [Concomitant]
  10. PERCOCET [Concomitant]

REACTIONS (2)
  - Haemorrhage [Unknown]
  - Incorrect dose administered [None]
